FAERS Safety Report 14488270 (Version 1)
Quarter: 2018Q1

REPORT INFORMATION
  Report Type: Spontaneous
  Country: US (occurrence: US)
  Receive Date: 20180203
  Receipt Date: 20180203
  Transmission Date: 20180509
  Serious: Yes (Hospitalization)
  Sender: FDA-Public Use
  Company Number: None

PATIENT
  Age: 51 Year
  Sex: Female

DRUGS (1)
  1. NINLARO [Suspect]
     Active Substance: IXAZOMIB CITRATE
     Indication: PLASMA CELL MYELOMA
     Dosage: 3MG WEEKLY FOR 3 WEEKS ON, THEN 1 WEEK OFF ORAL
     Route: 048
     Dates: start: 20171019

REACTIONS (3)
  - Vomiting [None]
  - Diarrhoea [None]
  - Transient ischaemic attack [None]

NARRATIVE: CASE EVENT DATE: 20180116
